FAERS Safety Report 12301444 (Version 2)
Quarter: 2016Q2

REPORT INFORMATION
  Report Type: Spontaneous
  Country: CN (occurrence: CN)
  Receive Date: 20160425
  Receipt Date: 20160428
  Transmission Date: 20160815
  Serious: Yes (Other)
  Sender: FDA-Public Use
  Company Number: CN-JNJFOC-20160422406

PATIENT

DRUGS (9)
  1. CYCLOPHOSPHAMIDE. [Suspect]
     Active Substance: CYCLOPHOSPHAMIDE
     Indication: PLASMA CELL MYELOMA
     Route: 065
  2. BORTEZOMIB [Suspect]
     Active Substance: BORTEZOMIB
     Indication: PLASMA CELL MYELOMA
     Dosage: DOSE REDUCE
     Route: 065
  3. BORTEZOMIB [Suspect]
     Active Substance: BORTEZOMIB
     Indication: PLASMA CELL MYELOMA
     Route: 065
  4. BORTEZOMIB [Suspect]
     Active Substance: BORTEZOMIB
     Indication: PLASMA CELL MYELOMA
     Dosage: 1.0-1.3 MG/M2 ON DAY 1, 4, 8 AND 11
     Route: 065
  5. MELPHALAN [Suspect]
     Active Substance: MELPHALAN
     Indication: PLASMA CELL MYELOMA
     Route: 065
  6. DOXORUBICIN HYDROCHLORIDE. [Suspect]
     Active Substance: DOXORUBICIN HYDROCHLORIDE
     Indication: PLASMA CELL MYELOMA
     Route: 065
  7. DEXAMETHASONE. [Suspect]
     Active Substance: DEXAMETHASONE
     Indication: PLASMA CELL MYELOMA
     Route: 065
  8. ARSENIC TRIOXIDE [Suspect]
     Active Substance: ARSENIC TRIOXIDE
     Indication: PLASMA CELL MYELOMA
     Route: 065
  9. THALIDOMIDE [Suspect]
     Active Substance: THALIDOMIDE
     Indication: PLASMA CELL MYELOMA
     Route: 065

REACTIONS (22)
  - Intestinal obstruction [Recovered/Resolved]
  - White blood cell count decreased [Unknown]
  - Hypoalbuminaemia [Recovered/Resolved]
  - Lung infection [Unknown]
  - Hepatotoxicity [Recovered/Resolved]
  - Electrolyte imbalance [Recovered/Resolved]
  - Constipation [Unknown]
  - Neuropathy peripheral [Recovering/Resolving]
  - Dermatitis exfoliative [Unknown]
  - Fatigue [Unknown]
  - Amyloidosis [Unknown]
  - Diarrhoea [Recovered/Resolved]
  - Tumour lysis syndrome [Recovering/Resolving]
  - Platelet count decreased [Unknown]
  - Bradycardia [Recovered/Resolved]
  - Rash [Unknown]
  - Neutrophil count decreased [Unknown]
  - Nausea [Unknown]
  - Haematotoxicity [Unknown]
  - Herpes zoster [Recovered/Resolved]
  - Decreased appetite [Unknown]
  - Vomiting [Unknown]
